FAERS Safety Report 13705850 (Version 1)
Quarter: 2017Q2

REPORT INFORMATION
  Report Type: Spontaneous
  Country: IT (occurrence: IT)
  Receive Date: 20170630
  Receipt Date: 20170630
  Transmission Date: 20170830
  Serious: Yes (Hospitalization)
  Sender: FDA-Public Use
  Company Number: IT-BAYER-2017-125747

PATIENT
  Age: 65 Year
  Sex: Male

DRUGS (6)
  1. LARGACTIL [Concomitant]
     Active Substance: CHLORPROMAZINE
  2. ATENOLOL. [Concomitant]
     Active Substance: ATENOLOL
  3. CARDIOASPIRIN 100 MG [Suspect]
     Active Substance: ASPIRIN
     Indication: CARDIAC VALVE PROSTHESIS USER
     Dosage: 100 MG, QD
     Route: 048
     Dates: start: 20170101, end: 20170418
  4. LANSOPRAZOLE. [Concomitant]
     Active Substance: LANSOPRAZOLE
  5. RAMIPRIL. [Concomitant]
     Active Substance: RAMIPRIL
  6. POTASSIUM CANRENOATE [Concomitant]
     Active Substance: CANRENOATE POTASSIUM

REACTIONS (1)
  - Microcytic anaemia [Unknown]

NARRATIVE: CASE EVENT DATE: 20170418
